FAERS Safety Report 9476053 (Version 4)
Quarter: 2013Q4

REPORT INFORMATION
  Report Type: Report from Study
  Country: BR (occurrence: BR)
  Receive Date: 20130826
  Receipt Date: 20131219
  Transmission Date: 20140711
  Serious: Yes (Other)
  Sender: FDA-Public Use
  Company Number: BR-ROCHE-1063849

PATIENT
  Sex: Female
  Weight: 64 kg

DRUGS (9)
  1. ACTEMRA [Suspect]
     Indication: RHEUMATOID ARTHRITIS
     Route: 065
     Dates: start: 201203
  2. ACTEMRA [Suspect]
     Dosage: 2ND INFUSION.
     Route: 065
     Dates: start: 20120412
  3. ACTEMRA [Suspect]
     Route: 065
     Dates: start: 201307
  4. PREDNISONE [Concomitant]
     Indication: PRODUCT USED FOR UNKNOWN INDICATION
     Route: 065
  5. DICLOFENAC [Concomitant]
     Indication: PAIN
     Route: 065
  6. AMITRIPTYLINE [Concomitant]
     Indication: PRODUCT USED FOR UNKNOWN INDICATION
     Route: 065
  7. LORAX [Concomitant]
     Indication: PRODUCT USED FOR UNKNOWN INDICATION
     Route: 065
  8. ARADOIS [Concomitant]
     Indication: HYPERTENSION
     Route: 065
  9. SIMVASTATIN [Concomitant]
     Indication: BLOOD CHOLESTEROL ABNORMAL
     Route: 065

REACTIONS (5)
  - Blindness [Recovering/Resolving]
  - Eye injury [Recovering/Resolving]
  - Dysgeusia [Unknown]
  - Onychomycosis [Recovering/Resolving]
  - Pain [Unknown]
